FAERS Safety Report 7314052-2 (Version None)
Quarter: 2011Q1

REPORT INFORMATION
  Report Type: 
  Country: None (occurrence: None)
  Receive Date: 20110225
  Receipt Date: 20100503
  Transmission Date: 20110831
  Serious: No
  Sender: FDA-Public Use
  Company Number: US-MYLANLABS-2010S1006787

PATIENT
  Age: 44 Year
  Sex: Male
  Weight: 147 kg

DRUGS (2)
  1. DURICEF [Concomitant]
     Indication: STAPHYLOCOCCAL INFECTION
  2. AMNESTEEM [Suspect]
     Indication: ACNE CONGLOBATA
     Route: 048
     Dates: start: 20100201, end: 20100415

REACTIONS (1)
  - DIARRHOEA [None]
